FAERS Safety Report 23635228 (Version 2)
Quarter: 2024Q2

REPORT INFORMATION
  Report Type: Report from Study
  Country: CA (occurrence: CA)
  Receive Date: 20240315
  Receipt Date: 20240404
  Transmission Date: 20240715
  Serious: Yes (Other)
  Sender: FDA-Public Use
  Company Number: CA-DRL-USA-CLI/CAN/24/0004017

PATIENT
  Age: 67 Year
  Sex: Female

DRUGS (1)
  1. ZOLEDRONIC ACID [Suspect]
     Active Substance: ZOLEDRONIC ACID
     Indication: Osteoporosis
     Dosage: 5 MG/100 ML YEARLY
     Dates: start: 20230228

REACTIONS (5)
  - Ventricular extrasystoles [Recovered/Resolved]
  - Cardiac flutter [Recovered/Resolved]
  - Condition aggravated [Recovered/Resolved]
  - Pallor [Unknown]
  - Anxiety [Unknown]

NARRATIVE: CASE EVENT DATE: 20230228
